FAERS Safety Report 8461890-9 (Version None)
Quarter: 2012Q2

REPORT INFORMATION
  Report Type: 
  Country: None (occurrence: None)
  Receive Date: 20120625
  Receipt Date: 20120614
  Transmission Date: 20120825
  Serious: Yes (Other)
  Sender: FDA-Public Use
  Company Number: US-JNJFOC-20120608745

PATIENT

DRUGS (3)
  1. DOXORUBICIN HCL [Suspect]
     Indication: HODGKIN'S DISEASE
     Dosage: 6 CYCLES, ON DAYS 1 AND 15 EVERY 28 DAYS
     Route: 042
  2. GEMCITABINE [Suspect]
     Indication: HODGKIN'S DISEASE
     Dosage: 6 CYCLES, ON DAYS 1 AND 15 EVERY 28 DAYS
     Route: 042
  3. VINBLASTINE SULFATE [Suspect]
     Indication: HODGKIN'S DISEASE
     Dosage: 6 CYCLES, ON DAYS 1 AND 15 EVERY 28 DAYS
     Route: 042

REACTIONS (3)
  - NEUTROPENIA [None]
  - CARBON MONOXIDE DIFFUSING CAPACITY DECREASED [None]
  - THROMBOCYTOPENIA [None]
